FAERS Safety Report 4667712-6 (Version None)
Quarter: 2005Q2

REPORT INFORMATION
  Report Type: 
  Country: None (occurrence: None)
  Receive Date: 20050520
  Receipt Date: 20041116
  Transmission Date: 20051028
  Serious: Yes (Other)
  Sender: FDA-Public Use
  Company Number: PHNU2004DE03873

PATIENT
  Sex: Female
  Weight: 60 kg

DRUGS (2)
  1. AREDIA [Suspect]
     Indication: OSTEOLYSIS
     Dosage: 60 MG EVERY 6 WEEKS
     Route: 042
     Dates: start: 19940101
  2. VERAPAMIL [Concomitant]
     Route: 065

REACTIONS (4)
  - DENTAL TREATMENT [None]
  - JAW DISORDER [None]
  - OSTEOMYELITIS [None]
  - OSTEONECROSIS [None]
